FAERS Safety Report 9221713 (Version 1)
Quarter: 2013Q2

REPORT INFORMATION
  Report Type: Spontaneous
  Country: GB (occurrence: None)
  Receive Date: 20130408
  Receipt Date: 20130408
  Transmission Date: 20140414
  Serious: Yes (Hospitalization)
  Sender: FDA-Public Use
  Company Number: 2013000077

PATIENT
  Age: 72 Year
  Sex: Male

DRUGS (4)
  1. ACEON (PERINDOPRIL ERBUMINE) TABLET [Suspect]
     Indication: PRODUCT USED FOR UNKNOWN INDICATION
  2. NAPROXEN (NAPROXEN) [Suspect]
     Route: 048
     Dates: start: 20111114, end: 20121223
  3. SULFASALAZINE [Suspect]
     Indication: RHEUMATOID ARTHRITIS
     Route: 048
     Dates: start: 20121203, end: 201212
  4. OMEPRAZOLE (OMEPRAZOLE) [Concomitant]

REACTIONS (5)
  - Diarrhoea [None]
  - Malaise [None]
  - Drug interaction [None]
  - Blood creatinine increased [None]
  - Renal failure acute [None]
